FAERS Safety Report 26117338 (Version 2)
Quarter: 2025Q4

REPORT INFORMATION
  Report Type: Spontaneous
  Country: JP (occurrence: JP)
  Receive Date: 20251203
  Receipt Date: 20251219
  Transmission Date: 20260118
  Serious: Yes (Death)
  Sender: AMGEN
  Company Number: JP-AMGEN-JPNSP2025236359

PATIENT

DRUGS (18)
  1. MVASI [Suspect]
     Active Substance: BEVACIZUMAB-AWWB
     Indication: Lung neoplasm malignant
     Dosage: DRIP INFUSION
     Route: 040
  2. MVASI [Suspect]
     Active Substance: BEVACIZUMAB-AWWB
     Indication: Breast cancer
  3. MVASI [Suspect]
     Active Substance: BEVACIZUMAB-AWWB
     Indication: Oesophageal carcinoma
  4. MVASI [Suspect]
     Active Substance: BEVACIZUMAB-AWWB
     Indication: Colon cancer
  5. MVASI [Suspect]
     Active Substance: BEVACIZUMAB-AWWB
     Indication: Cervix carcinoma
  6. MVASI [Suspect]
     Active Substance: BEVACIZUMAB-AWWB
     Indication: Tongue neoplasm malignant stage unspecified
  7. MVASI [Suspect]
     Active Substance: BEVACIZUMAB-AWWB
     Indication: Soft tissue sarcoma
  8. MVASI [Suspect]
     Active Substance: BEVACIZUMAB-AWWB
     Indication: Pancreatic carcinoma
  9. MVASI [Suspect]
     Active Substance: BEVACIZUMAB-AWWB
     Indication: Ureteric cancer
  10. MVASI [Suspect]
     Active Substance: BEVACIZUMAB-AWWB
     Indication: Prostate cancer
  11. MVASI [Suspect]
     Active Substance: BEVACIZUMAB-AWWB
     Indication: Rectal cancer
  12. MVASI [Suspect]
     Active Substance: BEVACIZUMAB-AWWB
     Indication: Thyroid cancer
  13. MVASI [Suspect]
     Active Substance: BEVACIZUMAB-AWWB
     Indication: Hepatic cancer
  14. MVASI [Suspect]
     Active Substance: BEVACIZUMAB-AWWB
     Indication: Gastric cancer
  15. MVASI [Suspect]
     Active Substance: BEVACIZUMAB-AWWB
     Indication: Renal cancer
  16. MVASI [Suspect]
     Active Substance: BEVACIZUMAB-AWWB
     Indication: Uterine cancer
  17. MVASI [Suspect]
     Active Substance: BEVACIZUMAB-AWWB
     Indication: Neoplasm malignant
  18. METHADONE [Concomitant]
     Active Substance: METHADONE HYDROCHLORIDE
     Indication: Cancer pain

REACTIONS (5)
  - Death [Fatal]
  - Dizziness [Unknown]
  - Somnolence [Unknown]
  - Nausea [Unknown]
  - Off label use [Unknown]
